FAERS Safety Report 4292279-4 (Version None)
Quarter: 2004Q1

REPORT INFORMATION
  Report Type: 
  Country: None (occurrence: None)
  Receive Date: 20040211
  Receipt Date: 20031223
  Transmission Date: 20041129
  Serious: Yes (Death, Hospitalization)
  Sender: FDA-Public Use
  Company Number: CA-ROCHE-354897

PATIENT
  Age: 80 Year
  Sex: Male
  Weight: 71 kg

DRUGS (19)
  1. CAPECITABINE [Suspect]
     Dosage: INTERMITTENT THERAPY OF TWO WEEKS TREATMENT, ONE WEEK REST.
     Route: 048
     Dates: end: 20031215
  2. CAPECITABINE [Suspect]
     Dosage: ON DAYS ONE THROUGH FOURTEEN OF A TWENTY-ONE DAY CYCLE.
     Route: 048
     Dates: start: 20030924
  3. OXALIPLATIN [Suspect]
     Route: 042
     Dates: start: 20030924, end: 20031211
  4. IMODIUM [Suspect]
     Indication: DRUG USE FOR UNKNOWN INDICATION
     Route: 065
     Dates: start: 20031001, end: 20031221
  5. MORPHINE [Suspect]
     Indication: DRUG USE FOR UNKNOWN INDICATION
     Dosage: GIVEN AS NEEDED.
     Route: 048
     Dates: start: 20031219, end: 20031219
  6. MORPHINE [Suspect]
     Dosage: GIVEN AS NEEDED.
     Route: 048
     Dates: start: 20031222, end: 20031228
  7. TYLENOL W/ CODEINE NO. 3 [Concomitant]
     Dosage: STARTED PRE-STUDY.
     Dates: start: 20030915, end: 20031215
  8. COLACE [Concomitant]
     Dates: start: 20030917, end: 20031215
  9. SODIUM CHLORIDE 0.9% [Concomitant]
     Route: 042
     Dates: start: 20031220, end: 20031220
  10. NORMAL SALINE W KCL [Concomitant]
     Route: 042
     Dates: start: 20030921, end: 20031228
  11. SENOKOT [Concomitant]
     Dates: start: 20031221, end: 20031227
  12. SURFAK [Concomitant]
     Dates: start: 20031221, end: 20031228
  13. MAXERAN [Concomitant]
     Dates: start: 20031221, end: 20031226
  14. RANITIDINE [Concomitant]
     Dates: start: 20031224, end: 20031228
  15. LASIX [Concomitant]
     Dates: start: 20031225, end: 20031228
  16. SPIROLACTONE [Concomitant]
     Dates: start: 20031225, end: 20031228
  17. FLEETS ENEMA [Concomitant]
     Dates: start: 20031220, end: 20031227
  18. NORMAL SALINE ENEMA [Concomitant]
     Dates: start: 20031220, end: 20031220
  19. LACTULOSE [Concomitant]
     Dates: start: 20031227, end: 20031227

REACTIONS (6)
  - ASCITES [None]
  - ATELECTASIS [None]
  - BLOOD PRESSURE DECREASED [None]
  - CONSTIPATION [None]
  - INTESTINAL PERFORATION [None]
  - VOMITING [None]
